FAERS Safety Report 7781802-0 (Version None)
Quarter: 2011Q3

REPORT INFORMATION
  Report Type: 
  Country: None (occurrence: None)
  Receive Date: 20110927
  Receipt Date: 20110918
  Transmission Date: 20111222
  Serious: Yes (Congenital Anomaly)
  Sender: FDA-Public Use
  Company Number: SY-GLAXOSMITHKLINE-B0748980B

PATIENT
  Age: 35 Week
  Sex: Female

DRUGS (2)
  1. LAMICTAL [Suspect]
     Indication: EPILEPSY
     Dosage: 100MG PER DAY
     Route: 064
     Dates: start: 20101108
  2. FOLIC ACID [Suspect]
     Indication: PROPHYLAXIS
     Dosage: 5MG PER DAY
     Route: 064
     Dates: start: 20100101

REACTIONS (5)
  - CONGENITAL ANOMALY [None]
  - HYDROCEPHALUS [None]
  - CARDIAC SEPTAL DEFECT [None]
  - MATERNAL EXPOSURE DURING PREGNANCY [None]
  - CEREBRAL ATROPHY CONGENITAL [None]
